FAERS Safety Report 5163560-1 (Version None)
Quarter: 2006Q4

REPORT INFORMATION
  Report Type: 
  Country: None (occurrence: None)
  Receive Date: 20061204
  Receipt Date: 20061122
  Transmission Date: 20070319
  Serious: Yes (Other)
  Sender: FDA-Public Use
  Company Number: PHBS2006JP18344

PATIENT
  Age: 14 Year
  Sex: Female

DRUGS (2)
  1. AZATHIOPRINE [Concomitant]
     Indication: CONGENITAL APLASTIC ANAEMIA
     Route: 048
  2. CYCLOSPORINE [Suspect]
     Indication: CONGENITAL APLASTIC ANAEMIA
     Route: 065

REACTIONS (4)
  - DISEASE PROGRESSION [None]
  - HAEMOGLOBIN DECREASED [None]
  - MENTAL DISORDER [None]
  - POLYMENORRHAGIA [None]
